FAERS Safety Report 16842475 (Version 1)
Quarter: 2019Q3

REPORT INFORMATION
  Report Type: Spontaneous
  Country: CN (occurrence: CN)
  Receive Date: 20190924
  Receipt Date: 20190924
  Transmission Date: 20191005
  Serious: Yes (Other)
  Sender: FDA-Public Use
  Company Number: CN-ASTRAZENECA-2019SE88112

PATIENT
  Age: 1992 Day
  Sex: Male
  Weight: 19 kg

DRUGS (5)
  1. CEFOTAXIME SODIUM AND SULBACTAM SODIUM FOR INJECTION [Suspect]
     Active Substance: CEFOTAXIME SODIUM\SULBACTAM SODIUM
     Indication: UPPER RESPIRATORY TRACT INFECTION
     Route: 041
     Dates: start: 20190607
  2. SODIUM CHLORIDE. [Concomitant]
     Active Substance: SODIUM CHLORIDE
     Indication: HEAT ILLNESS
     Dates: start: 20190607
  3. SODIUM CHLORIDE. [Concomitant]
     Active Substance: SODIUM CHLORIDE
     Indication: ELECTROLYTE IMBALANCE
     Dates: start: 20190607
  4. PULMICORT RESPULES [Suspect]
     Active Substance: BUDESONIDE
     Indication: UPPER RESPIRATORY TRACT INFECTION
     Route: 055
     Dates: start: 20190607
  5. SODIUM CHLORIDE. [Concomitant]
     Active Substance: SODIUM CHLORIDE
     Indication: SUPPLEMENTATION THERAPY
     Dates: start: 20190607

REACTIONS (8)
  - Tachypnoea [Recovered/Resolved]
  - Anaphylactoid reaction [Recovered/Resolved]
  - Oropharyngeal pain [Recovered/Resolved]
  - Choking [Recovered/Resolved]
  - Breath sounds abnormal [Recovered/Resolved]
  - Nausea [Recovered/Resolved]
  - Wheezing [Recovered/Resolved]
  - Rash [Recovered/Resolved]

NARRATIVE: CASE EVENT DATE: 20190607
